FAERS Safety Report 12503722 (Version 1)
Quarter: 2016Q2

REPORT INFORMATION
  Report Type: Report from Study
  Country: JP (occurrence: JP)
  Receive Date: 20160628
  Receipt Date: 20160628
  Transmission Date: 20160815
  Serious: Yes (Hospitalization, Disabling, Other)
  Sender: FDA-Public Use
  Company Number: JP-INCYTE CORPORATION-2015IN006751

PATIENT
  Age: 66 Year
  Sex: Male
  Weight: 54 kg

DRUGS (4)
  1. JAKAFI [Suspect]
     Active Substance: RUXOLITINIB
     Indication: MYELOFIBROSIS
     Dosage: 5 MG, BID
     Route: 048
     Dates: start: 20141030, end: 20150324
  2. UFT [Concomitant]
     Active Substance: TEGAFUR\URACIL
     Indication: RECTAL CANCER
     Dosage: 3 DF, UNK
     Route: 048
     Dates: start: 20141121, end: 20150410
  3. JAKAFI [Suspect]
     Active Substance: RUXOLITINIB
     Dosage: 10 MG, BID
     Route: 048
     Dates: start: 20150325, end: 20150807
  4. UZEL [Concomitant]
     Active Substance: LEUCOVORIN CALCIUM
     Indication: RECTAL CANCER
     Dosage: 75 MG, QD (25 MG 3 TABLETS)
     Route: 048
     Dates: start: 20141121, end: 20150410

REACTIONS (13)
  - Hepatic function abnormal [Recovered/Resolved]
  - Pancreatic carcinoma [Not Recovered/Not Resolved]
  - Second primary malignancy [Not Recovered/Not Resolved]
  - Jaundice [Unknown]
  - Gamma-glutamyltransferase increased [Not Recovered/Not Resolved]
  - Abdominal pain [Unknown]
  - Drug effect incomplete [Unknown]
  - Metastases to liver [Unknown]
  - Metastases to spleen [Unknown]
  - Jaundice cholestatic [Unknown]
  - Cholelithiasis [Unknown]
  - Splenomegaly [Unknown]
  - Anaemia [Recovering/Resolving]

NARRATIVE: CASE EVENT DATE: 20150719
